FAERS Safety Report 7602536-9 (Version None)
Quarter: 2011Q3

REPORT INFORMATION
  Report Type: 
  Country: None (occurrence: None)
  Receive Date: 20110707
  Receipt Date: 20110401
  Transmission Date: 20111222
  Serious: Yes (Hospitalization)
  Sender: FDA-Public Use
  Company Number: US-CYPR-2011-000009

PATIENT
  Sex: Male
  Weight: 69.7 kg

DRUGS (8)
  1. FOLIC ACID [Concomitant]
  2. ATORVASTATIN [Concomitant]
  3. REGLAN [Concomitant]
  4. CLOPIDOGREL [Suspect]
     Indication: ANTIPLATELET THERAPY
     Dosage: (75 MG QD ORAL)
     Route: 048
     Dates: start: 20101210
  5. ASPIRIN [Suspect]
     Dosage: (325 MG QD ORAL)
     Route: 048
     Dates: start: 20091217
  6. LEVOTHYROXINE [Concomitant]
  7. ISOSORBIDE MONONITRATE [Concomitant]
  8. CYPHER STENT [Concomitant]

REACTIONS (1)
  - NON-CARDIAC CHEST PAIN [None]
